FAERS Safety Report 8570861-3 (Version None)
Quarter: 2012Q3

REPORT INFORMATION
  Report Type: 
  Country: None (occurrence: None)
  Receive Date: 20120806
  Receipt Date: 20120725
  Transmission Date: 20120928
  Serious: Yes (Life-Threatening, Hospitalization, Other)
  Sender: FDA-Public Use
  Company Number: FR-BIOGENIDEC-2012BI027676

PATIENT
  Age: 52 Year
  Sex: Male
  Weight: 82 kg

DRUGS (17)
  1. BACLOFEN [Concomitant]
  2. NEURONTIN [Concomitant]
  3. NEXIUM [Concomitant]
  4. MORPHINE SULFATE [Concomitant]
  5. KETOPROFEN [Concomitant]
  6. METHYLNALTREXONE [Concomitant]
  7. ATARAX [Concomitant]
  8. GLATIRAMER ACETATE [Concomitant]
     Indication: MULTIPLE SCLEROSIS
     Route: 058
     Dates: start: 20081027
  9. DUPHALAC [Concomitant]
  10. ZOLPIDEM TARTRATE [Concomitant]
  11. MORPHINE SULFATE [Concomitant]
  12. TYSABRI [Suspect]
     Indication: MULTIPLE SCLEROSIS
     Route: 042
     Dates: start: 20071210, end: 20080624
  13. LANSOYL [Concomitant]
  14. XANAX [Concomitant]
  15. ACETAMINOPHEN [Concomitant]
  16. MOTILIUM [Concomitant]
  17. LOVENOX [Concomitant]

REACTIONS (2)
  - CHRONIC LYMPHOCYTIC LEUKAEMIA [None]
  - LUNG CANCER METASTATIC [None]
